FAERS Safety Report 17339839 (Version 1)
Quarter: 2020Q1

REPORT INFORMATION
  Report Type: Report from Study
  Country: GB (occurrence: GB)
  Receive Date: 20200129
  Receipt Date: 20200129
  Transmission Date: 20200409
  Serious: Yes (Other)
  Sender: FDA-Public Use
  Company Number: GB-SAMSUNG BIOEPIS-SB-2020-01443

PATIENT
  Age: 45 Year
  Sex: Male

DRUGS (2)
  1. IMRALDI [Suspect]
     Active Substance: ADALIMUMAB
     Indication: ANKYLOSING SPONDYLITIS
     Route: 058
  2. IMRALDI [Suspect]
     Active Substance: ADALIMUMAB
     Route: 058
     Dates: start: 20200108

REACTIONS (7)
  - Infection [Unknown]
  - Cortisol decreased [Not Recovered/Not Resolved]
  - Pituitary tumour removal [Unknown]
  - Ear infection [Recovered/Resolved]
  - Eczema [Not Recovered/Not Resolved]
  - External ear cellulitis [Unknown]
  - Skin infection [Recovered/Resolved]

NARRATIVE: CASE EVENT DATE: 201901
